FAERS Safety Report 6120399-8 (Version None)
Quarter: 2009Q1

REPORT INFORMATION
  Report Type: 
  Country: None (occurrence: None)
  Receive Date: 20090317
  Receipt Date: 20090304
  Transmission Date: 20090719
  Serious: Yes (Hospitalization)
  Sender: FDA-Public Use
  Company Number: PHHY2009SE07890

PATIENT
  Sex: Female

DRUGS (10)
  1. LEPONEX [Suspect]
     Dosage: 25 MG 0+0+1 WITH SLOW INCREASE
     Route: 048
     Dates: end: 20081127
  2. LEPONEX [Suspect]
     Dosage: 100 MG 1X2
     Route: 048
     Dates: start: 20081127
  3. LEPONEX [Suspect]
     Dosage: 25 MG 1X2
     Route: 048
     Dates: start: 20081204, end: 20081205
  4. PROPAVAN [Concomitant]
     Dosage: 25 MG
  5. AKINETON [Concomitant]
     Dosage: 2 MG
  6. DIAZEPAM [Concomitant]
     Dosage: 5 MG
  7. CISORDINOL [Concomitant]
     Dosage: 10 MG
  8. ERGENYL [Concomitant]
     Dosage: 500 MG
  9. LITHIUM CARBONATE [Concomitant]
     Dosage: 42 MG
  10. ZYPREXA [Concomitant]
     Dosage: 15 MG

REACTIONS (5)
  - ABDOMINAL PAIN [None]
  - C-REACTIVE PROTEIN INCREASED [None]
  - MALAISE [None]
  - OROPHARYNGEAL PAIN [None]
  - PYREXIA [None]
